FAERS Safety Report 17045433 (Version 4)
Quarter: 2020Q1

REPORT INFORMATION
  Report Type: Report from Study
  Country: US (occurrence: US)
  Receive Date: 20191118
  Receipt Date: 20200221
  Transmission Date: 20200409
  Serious: Yes (Death, Hospitalization, Other)
  Sender: FDA-Public Use
  Company Number: US-TAKEDA-2018TUS028525

PATIENT
  Sex: Female

DRUGS (2)
  1. PONATINIB [Suspect]
     Active Substance: PONATINIB
     Indication: ACUTE LYMPHOCYTIC LEUKAEMIA
     Dosage: 30 MILLIGRAM, QD
     Route: 048
     Dates: start: 201807
  2. PONATINIB [Suspect]
     Active Substance: PONATINIB
     Dosage: 15 MILLIGRAM, QD
     Route: 048
     Dates: start: 201909, end: 20200211

REACTIONS (12)
  - Hyponatraemia [Unknown]
  - Acute lymphocytic leukaemia [Fatal]
  - Gastroenteritis [Unknown]
  - Mental status changes [Unknown]
  - Infection [Unknown]
  - Leukaemia recurrent [Unknown]
  - Pancreatitis [Unknown]
  - Central nervous system function test abnormal [Unknown]
  - Constipation [Unknown]
  - Alopecia [Unknown]
  - Lethargy [Unknown]
  - Somnolence [Unknown]
